FAERS Safety Report 20411365 (Version 2)
Quarter: 2022Q1

REPORT INFORMATION
  Report Type: Spontaneous
  Country: DE (occurrence: DE)
  Receive Date: 20220201
  Receipt Date: 20220223
  Transmission Date: 20220423
  Serious: Yes (Other)
  Sender: FDA-Public Use
  Company Number: DE-AMICUS THERAPEUTICS, INC.-AMI_1664

PATIENT
  Age: 72 Year
  Sex: Male

DRUGS (3)
  1. GALAFOLD [Suspect]
     Active Substance: MIGALASTAT HYDROCHLORIDE
     Indication: Fabry^s disease
     Dosage: 123 MG
     Route: 048
     Dates: start: 201704
  2. PROGRAF [Concomitant]
     Active Substance: TACROLIMUS
     Indication: Immunosuppression
     Dosage: UNK
     Route: 065
  3. EVEROLIMUS [Concomitant]
     Active Substance: EVEROLIMUS
     Indication: Immunosuppression
     Dosage: UNK
     Route: 065

REACTIONS (4)
  - Hepatic cirrhosis [Unknown]
  - Vasculitis [Unknown]
  - Post procedural complication [Unknown]
  - Cardiac failure chronic [Unknown]

NARRATIVE: CASE EVENT DATE: 20171201
